FAERS Safety Report 15462208 (Version 2)
Quarter: 2018Q4

REPORT INFORMATION
  Report Type: Report from Study
  Country: AR (occurrence: AR)
  Receive Date: 20181004
  Receipt Date: 20181016
  Transmission Date: 20190204
  Serious: Yes (Hospitalization)
  Sender: FDA-Public Use
  Company Number: PHHY2018AR026626

PATIENT
  Age: 74 Year
  Sex: Female

DRUGS (4)
  1. LOSACOR [Concomitant]
     Active Substance: LOSARTAN POTASSIUM
     Indication: PRODUCT USED FOR UNKNOWN INDICATION
     Route: 065
  2. SANDOSTATIN LAR DEPOT [Suspect]
     Active Substance: OCTREOTIDE ACETATE
     Indication: RENAL CANCER
     Dosage: 30 MG, QMO (EVERY 28 DAYS)
     Route: 065
     Dates: start: 20180102
  3. AFINITOR [Suspect]
     Active Substance: EVEROLIMUS
     Indication: RENAL CANCER
     Dosage: 10 MG, QD
     Route: 065
     Dates: start: 20180103
  4. INSULIN [Concomitant]
     Active Substance: INSULIN NOS
     Indication: PRODUCT USED FOR UNKNOWN INDICATION
     Route: 065

REACTIONS (9)
  - Disorientation [Recovered/Resolved]
  - Malaise [Not Recovered/Not Resolved]
  - Eating disorder [Recovered/Resolved]
  - Diarrhoea [Recovering/Resolving]
  - Loss of consciousness [Recovered/Resolved]
  - Hypoglycaemia [Recovered/Resolved]
  - Weight decreased [Recovering/Resolving]
  - Drug intolerance [Recovered/Resolved]
  - Choking sensation [Recovered/Resolved]

NARRATIVE: CASE EVENT DATE: 201805
